FAERS Safety Report 24140865 (Version 1)
Quarter: 2024Q3

REPORT INFORMATION
  Report Type: Spontaneous
  Country: US (occurrence: None)
  Receive Date: 20240725
  Receipt Date: 20240725
  Transmission Date: 20241016
  Serious: Yes (Other)
  Sender: Public
  Company Number: None

PATIENT
  Age: 70 Year
  Sex: Female
  Weight: 61.5 kg

DRUGS (4)
  1. EXTRANEAL [Suspect]
     Active Substance: CALCIUM CHLORIDE\ICODEXTRIN\MAGNESIUM CHLORIDE\SODIUM CHLORIDE\SODIUM LACTATE
     Indication: End stage renal disease
     Dosage: OTHER FREQUENCY : EVERY TREATMENT;?
     Route: 033
     Dates: start: 20240626, end: 20240718
  2. Liberty Cycler Peritoneal Dialysis Machine [Concomitant]
  3. Stay Safe Transfer Set [Concomitant]
  4. HEPARIN [Concomitant]
     Active Substance: HEPARIN SODIUM

REACTIONS (4)
  - Dialysis [None]
  - Drug hypersensitivity [None]
  - Dermatitis [None]
  - Dry skin [None]

NARRATIVE: CASE EVENT DATE: 20240718
